FAERS Safety Report 19083105 (Version 1)
Quarter: 2021Q2

REPORT INFORMATION
  Report Type: Spontaneous
  Country: EG (occurrence: EG)
  Receive Date: 20210401
  Receipt Date: 20210401
  Transmission Date: 20210717
  Serious: Yes (Other)
  Sender: FDA-Public Use
  Company Number: EG-HIKMA PHARMACEUTICALS USA INC.-EG-H14001-21-01449

PATIENT
  Age: 49 Year
  Sex: Female

DRUGS (4)
  1. CARBIMAZOLE [Concomitant]
     Active Substance: CARBIMAZOLE
     Indication: PRODUCT USED FOR UNKNOWN INDICATION
     Route: 065
  2. GEMCITABINE. [Suspect]
     Active Substance: GEMCITABINE
     Indication: PANCREATIC CARCINOMA
     Dosage: DOSE OF 1700MG ON DAY 1 AND 8 FROM EVERY 21 DAYS CYCLE.
     Route: 041
  3. CARBOTINOL [Suspect]
     Active Substance: CARBOPLATIN
     Indication: PANCREATIC CARCINOMA
     Route: 041
  4. SUGARLO [Concomitant]
     Indication: PRODUCT USED FOR UNKNOWN INDICATION
     Route: 065

REACTIONS (8)
  - Hypochromic anaemia [Unknown]
  - Aspartate aminotransferase increased [Unknown]
  - Neutrophilia [Unknown]
  - Blood glucose increased [Unknown]
  - Deep vein thrombosis [Unknown]
  - Constipation [Unknown]
  - Vomiting [Unknown]
  - Fatigue [Unknown]
